FAERS Safety Report 5467557-3 (Version None)
Quarter: 2007Q3

REPORT INFORMATION
  Report Type: 
  Country: None (occurrence: None)
  Receive Date: 20070921
  Receipt Date: 20070912
  Transmission Date: 20080115
  Serious: Yes (Hospitalization, Other)
  Sender: FDA-Public Use
  Company Number: 2007AL003801

PATIENT
  Age: 7 Year
  Sex: Male
  Weight: 27.2158 kg

DRUGS (1)
  1. ACETAMINOPHEN AND CODEINE PHOSPHATE [Suspect]
     Indication: TYMPANIC MEMBRANE PERFORATION
     Dosage: 10 ML;Q6H;PO
     Route: 048
     Dates: start: 20070516, end: 20070519

REACTIONS (4)
  - BODY TEMPERATURE INCREASED [None]
  - LIVER FUNCTION TEST ABNORMAL [None]
  - TREMOR [None]
  - VOMITING [None]
